FAERS Safety Report 18788829 (Version 1)
Quarter: 2021Q1

REPORT INFORMATION
  Report Type: Spontaneous
  Country: PL (occurrence: PL)
  Receive Date: 20210126
  Receipt Date: 20210126
  Transmission Date: 20210419
  Serious: Yes (Other)
  Sender: FDA-Public Use
  Company Number: PL-PFIZER INC-2021042644

PATIENT
  Age: 58 Year
  Weight: 66 kg

DRUGS (4)
  1. SUTENT [Suspect]
     Active Substance: SUNITINIB MALATE
     Dosage: COURSE 3?4: 37.5 MG
  2. SUTENT [Suspect]
     Active Substance: SUNITINIB MALATE
     Dosage: COURSE 1?2: 50 MG
  3. SUTENT [Suspect]
     Active Substance: SUNITINIB MALATE
     Dosage: COURSE 5?18: 25 MG
  4. SUTENT [Suspect]
     Active Substance: SUNITINIB MALATE
     Dosage: COURSE 19?42: 37.5 MG

REACTIONS (22)
  - Dyspepsia [Unknown]
  - Hair colour changes [Unknown]
  - Neutropenia [Unknown]
  - Blood pressure increased [Unknown]
  - Pneumonitis [Unknown]
  - Chronic kidney disease [Unknown]
  - Pyrexia [Unknown]
  - Abdominal pain [Unknown]
  - Anaemia [Unknown]
  - Decreased appetite [Unknown]
  - Syncope [Unknown]
  - Weight increased [Unknown]
  - Hypothyroidism [Unknown]
  - Taste disorder [Unknown]
  - Conduction disorder [Unknown]
  - Respiratory tract infection [Unknown]
  - Diarrhoea [Unknown]
  - Cough [Unknown]
  - Back disorder [Unknown]
  - Transaminases increased [Unknown]
  - Hyperglycaemia [Unknown]
  - Bradycardia [Unknown]
